FAERS Safety Report 14418937 (Version 1)
Quarter: 2018Q1

REPORT INFORMATION
  Report Type: Spontaneous
  Country: US (occurrence: US)
  Receive Date: 20180122
  Receipt Date: 20180122
  Transmission Date: 20180509
  Serious: Yes (Other)
  Sender: FDA-Public Use
  Company Number: US-PFIZER INC-2018021139

PATIENT
  Sex: Male

DRUGS (1)
  1. PHENYTOIN. [Suspect]
     Active Substance: PHENYTOIN
     Indication: CONVULSION PROPHYLAXIS
     Dosage: UNK

REACTIONS (2)
  - Anticonvulsant drug level decreased [Unknown]
  - Drug ineffective [Unknown]
